FAERS Safety Report 5795376-7 (Version None)
Quarter: 2008Q2

REPORT INFORMATION
  Report Type: 
  Country: None (occurrence: None)
  Receive Date: 20080630
  Receipt Date: 20080619
  Transmission Date: 20081010
  Serious: Yes (Hospitalization, Other)
  Sender: FDA-Public Use
  Company Number: AU-PFIZER INC-2008032564

PATIENT
  Sex: Male

DRUGS (6)
  1. CADUET [Suspect]
     Dosage: TEXT:10/20
     Route: 048
  2. ENDONE [Suspect]
     Indication: PAIN
  3. DIAMICRON [Concomitant]
     Route: 048
  4. KARVEZIDE [Concomitant]
  5. ASPIRIN [Concomitant]
     Dosage: DAILY DOSE:100MG
     Route: 048
  6. XALATAN [Concomitant]
     Route: 061

REACTIONS (23)
  - ABDOMINAL DISCOMFORT [None]
  - ARTHRALGIA [None]
  - BALANCE DISORDER [None]
  - BLADDER DISORDER [None]
  - BLOOD GLUCOSE INCREASED [None]
  - CONSTIPATION [None]
  - DIARRHOEA [None]
  - DIZZINESS [None]
  - FATIGUE [None]
  - FEELING ABNORMAL [None]
  - HALLUCINATION [None]
  - HYPERHIDROSIS [None]
  - INFLUENZA [None]
  - INSOMNIA [None]
  - MALAISE [None]
  - NAUSEA [None]
  - NERVE COMPRESSION [None]
  - PAIN IN EXTREMITY [None]
  - PNEUMONIA [None]
  - RENAL DISORDER [None]
  - SEDATION [None]
  - UNEVALUABLE EVENT [None]
  - VOMITING [None]
